FAERS Safety Report 8774079 (Version 2)
Quarter: 2012Q4

REPORT INFORMATION
  Report Type: 
  Country: US (occurrence: US)
  Receive Date: 20120907
  Receipt Date: 20121129
  Transmission Date: 20130627
  Serious: Yes (Other)
  Sender: FDA-Public Use
  Company Number: US-PFIZER INC-2012219533

PATIENT
  Age: 22 Year
  Sex: Female
  Weight: 73.02 kg

DRUGS (1)
  1. ROBITUSSIN PEAK COLD MAXIMUM STRENGTH MULTI-SYMPTOM COLD [Suspect]
     Indication: COLD
     Dosage: UNK
     Dates: start: 20120821, end: 20120822

REACTIONS (3)
  - Staphylococcal infection [Not Recovered/Not Resolved]
  - Chest pain [Recovered/Resolved]
  - Heart rate increased [Recovered/Resolved]
